FAERS Safety Report 20868410 (Version 1)
Quarter: 2022Q2

REPORT INFORMATION
  Report Type: Spontaneous
  Country: BG (occurrence: BG)
  Receive Date: 20220524
  Receipt Date: 20220524
  Transmission Date: 20220720
  Serious: Yes (Hospitalization, Other)
  Sender: FDA-Public Use
  Company Number: BG-NOVARTISPH-NVSC2022BG118374

PATIENT
  Age: 58 Year
  Sex: Female
  Weight: 80 kg

DRUGS (9)
  1. LETROZOLE [Suspect]
     Active Substance: LETROZOLE
     Indication: HER2 positive breast cancer
     Dosage: 2.5 MG, QD
     Route: 048
     Dates: start: 20180816
  2. TRASTUZUMAB [Suspect]
     Active Substance: TRASTUZUMAB
     Indication: HER2 positive breast cancer
     Dosage: 600 MG, TIW(MOST RECENT DOSE PRIOR TO THE EVENT: 05/JUN/2018)
     Route: 041
     Dates: start: 20180103
  3. DOCETAXEL [Suspect]
     Active Substance: DOCETAXEL
     Indication: HER2 positive breast cancer
     Dosage: 130 MG, TIW
     Route: 042
     Dates: start: 20180103, end: 20180515
  4. LEVOTHYROXINE SODIUM [Concomitant]
     Active Substance: LEVOTHYROXINE SODIUM
     Indication: Hypothyroidism
     Dosage: 75 MG, QD
     Route: 048
     Dates: start: 20211115
  5. ARETA [Concomitant]
     Indication: Cardiotoxicity
     Dosage: 10 MG
     Route: 048
     Dates: start: 20200313
  6. FILGRASTIM [Concomitant]
     Active Substance: FILGRASTIM
     Indication: Haematotoxicity
     Dosage: 30 IU
     Route: 058
     Dates: start: 20180111, end: 20180118
  7. BISOPROLOL FUMARATE [Concomitant]
     Active Substance: BISOPROLOL FUMARATE
     Indication: Cardiotoxicity
     Dosage: UNK
     Route: 065
     Dates: start: 20180312
  8. MAGNESIUM CITRATE [Concomitant]
     Active Substance: MAGNESIUM CITRATE
     Indication: Cardiotoxicity
     Dosage: ONGOING = CHECKED
     Route: 065
     Dates: start: 20180312
  9. IRBESSO [Concomitant]
     Indication: Cardiotoxicity
     Dosage: ONGOING = CHECKED
     Route: 065
     Dates: start: 20180312

REACTIONS (2)
  - COVID-19 [Recovered/Resolved with Sequelae]
  - Diabetes mellitus [Recovered/Resolved with Sequelae]

NARRATIVE: CASE EVENT DATE: 20210520
